FAERS Safety Report 18944623 (Version 1)
Quarter: 2021Q1

REPORT INFORMATION
  Report Type: Spontaneous
  Country: US (occurrence: US)
  Receive Date: 20210226
  Receipt Date: 20210226
  Transmission Date: 20210420
  Serious: Yes (Other)
  Sender: FDA-Public Use
  Company Number: None

PATIENT
  Age: 42 Year
  Sex: Female
  Weight: 82.8 kg

DRUGS (4)
  1. VITAMIN C [Concomitant]
     Active Substance: ASCORBIC ACID
  2. SULFAMETHOXAZOLE?TMP DS [Suspect]
     Active Substance: SULFAMETHOXAZOLE\TRIMETHOPRIM
     Indication: PRODUCT USED FOR UNKNOWN INDICATION
     Route: 048
     Dates: start: 20210225, end: 20210226
  3. VITAMIN D [Concomitant]
     Active Substance: VITAMIN D NOS
  4. PROBIOTIC [Concomitant]
     Active Substance: PROBIOTICS NOS

REACTIONS (11)
  - Headache [None]
  - Pruritus [None]
  - Oropharyngeal pain [None]
  - Chills [None]
  - Hyperhidrosis [None]
  - Chest discomfort [None]
  - Lip swelling [None]
  - Mood altered [None]
  - Paraesthesia [None]
  - Palpitations [None]
  - Tinnitus [None]

NARRATIVE: CASE EVENT DATE: 20210225
